FAERS Safety Report 11058983 (Version 1)
Quarter: 2015Q2

REPORT INFORMATION
  Report Type: Spontaneous
  Country: US (occurrence: None)
  Receive Date: 20150420
  Receipt Date: 20150420
  Transmission Date: 20150821
  Serious: No
  Sender: FDA-Public Use
  Company Number: AEGR001139

PATIENT
  Age: 49 Year
  Sex: Male
  Weight: 128.3 kg

DRUGS (3)
  1. JUXTAPID [Suspect]
     Active Substance: LOMITAPIDE MESYLATE
     Indication: TYPE IIA HYPERLIPIDAEMIA
     Route: 048
     Dates: start: 20130829, end: 20131017
  2. ATORVASTATIN (ATORVASTATIN CALCIUM) [Concomitant]
  3. ASPIRIN (ACETYLSALICYLIC ACID) [Concomitant]
     Active Substance: ASPIRIN

REACTIONS (2)
  - Sensory loss [None]
  - High density lipoprotein decreased [None]

NARRATIVE: CASE EVENT DATE: 20130910
